FAERS Safety Report 14994397 (Version 1)
Quarter: 2018Q2

REPORT INFORMATION
  Report Type: Report from Study
  Country: CN (occurrence: CN)
  Receive Date: 20180611
  Receipt Date: 20180611
  Transmission Date: 20180711
  Serious: Yes (Other)
  Sender: FDA-Public Use
  Company Number: CN-ROCHE-2133323

PATIENT

DRUGS (5)
  1. ONDANSETRON [Concomitant]
     Active Substance: ONDANSETRON
     Route: 065
  2. OMEPRAZOLE. [Concomitant]
     Active Substance: OMEPRAZOLE
     Route: 065
  3. METOCLOPRAMIDE. [Concomitant]
     Active Substance: METOCLOPRAMIDE
     Route: 065
  4. CAPECITABINE. [Suspect]
     Active Substance: CAPECITABINE
     Indication: COLORECTAL CANCER
     Route: 065
  5. OXALIPLATIN. [Suspect]
     Active Substance: OXALIPLATIN
     Indication: COLORECTAL CANCER
     Dosage: FOR 120 MIN ON DAY 1
     Route: 042

REACTIONS (10)
  - Palmar-plantar erythrodysaesthesia syndrome [Unknown]
  - Renal impairment [Unknown]
  - Anaemia [Unknown]
  - Stomatitis [Unknown]
  - Vomiting [Unknown]
  - Hepatic function abnormal [Unknown]
  - Leukopenia [Unknown]
  - Thrombocytopenia [Unknown]
  - Nausea [Unknown]
  - Neurotoxicity [Unknown]
